FAERS Safety Report 16226762 (Version 4)
Quarter: 2019Q4

REPORT INFORMATION
  Report Type: Spontaneous
  Country: US (occurrence: US)
  Receive Date: 20190423
  Receipt Date: 20191029
  Transmission Date: 20200122
  Serious: Yes (Hospitalization)
  Sender: FDA-Public Use
  Company Number: US-ORPHAN EUROPE-2066121

PATIENT
  Age: 3 Week
  Sex: Female
  Weight: 11.2 kg

DRUGS (3)
  1. CARBAGLU [Suspect]
     Active Substance: CARGLUMIC ACID
  2. CARBAGLU [Suspect]
     Active Substance: CARGLUMIC ACID
     Indication: HYPERGLYCINAEMIA
     Dates: start: 20190326
  3. CARBAGLU [Suspect]
     Active Substance: CARGLUMIC ACID

REACTIONS (5)
  - Ammonia increased [Unknown]
  - Ammonia increased [Unknown]
  - Ammonia increased [Unknown]
  - Vomiting [Unknown]
  - Off label use [Unknown]

NARRATIVE: CASE EVENT DATE: 20190326
